FAERS Safety Report 25474056 (Version 1)
Quarter: 2025Q2

REPORT INFORMATION
  Report Type: Spontaneous
  Country: US (occurrence: None)
  Receive Date: 20250623
  Receipt Date: 20250623
  Transmission Date: 20250717
  Serious: Yes (Hospitalization)
  Sender: FDA-CTU
  Company Number: None

PATIENT
  Age: 85 Year
  Sex: Female

DRUGS (1)
  1. OPSUMIT [Suspect]
     Active Substance: MACITENTAN
     Indication: Pulmonary arterial hypertension
     Dosage: FREQUENCY : DAILY;?
     Route: 048
     Dates: start: 20250516

REACTIONS (6)
  - Peripheral swelling [None]
  - Joint swelling [None]
  - Waist circumference increased [None]
  - Gait disturbance [None]
  - Blister [None]
  - Creatinine renal clearance increased [None]

NARRATIVE: CASE EVENT DATE: 20250603
